FAERS Safety Report 17362706 (Version 1)
Quarter: 2020Q1

REPORT INFORMATION
  Report Type: Spontaneous
  Country: US (occurrence: US)
  Receive Date: 20200202
  Receipt Date: 20200202
  Transmission Date: 20200409
  Serious: Yes (Other)
  Sender: FDA-Public Use
  Company Number: None

PATIENT
  Age: 59 Year
  Sex: Female
  Weight: 54 kg

DRUGS (7)
  1. T4 [Concomitant]
     Active Substance: LEVOTHYROXINE
  2. NORVASC [Concomitant]
     Active Substance: AMLODIPINE BESYLATE
  3. CYMBALTA [Concomitant]
     Active Substance: DULOXETINE HYDROCHLORIDE
  4. BYSTOLIC [Concomitant]
     Active Substance: NEBIVOLOL HYDROCHLORIDE
  5. EMGALITY [Suspect]
     Active Substance: GALCANEZUMAB-GNLM
     Indication: MIGRAINE
     Dosage: ?          QUANTITY:2 INJECTION(S);OTHER FREQUENCY:I TOOK IT ONCE;?
     Route: 058
     Dates: start: 20191110, end: 20191110
  6. ZOLOFT [Concomitant]
     Active Substance: SERTRALINE HYDROCHLORIDE
  7. T3 [Concomitant]
     Active Substance: LIOTHYRONINE SODIUM

REACTIONS (16)
  - Insomnia [None]
  - Diarrhoea [None]
  - Weight decreased [None]
  - Depression [None]
  - Tinnitus [None]
  - Fatigue [None]
  - Hyperhidrosis [None]
  - Tremor [None]
  - Anxiety [None]
  - Muscle spasms [None]
  - Vision blurred [None]
  - Paraesthesia [None]
  - Asthenia [None]
  - Abdominal pain [None]
  - Pain [None]
  - Nausea [None]

NARRATIVE: CASE EVENT DATE: 20191110
